FAERS Safety Report 9164637 (Version 2)
Quarter: 2013Q2

REPORT INFORMATION
  Report Type: Spontaneous
  Country: US (occurrence: None)
  Receive Date: 20130312
  Receipt Date: 20130409
  Transmission Date: 20140414
  Serious: Yes (Hospitalization, Other)
  Sender: FDA-Public Use
  Company Number: 2013US-004616

PATIENT
  Age: 51 Year
  Sex: Male
  Weight: 73.6 kg

DRUGS (12)
  1. OMONTYS (PEGINESATIDE) SOLUTION FOR INJECTION [Suspect]
     Indication: NEPHROGENIC ANAEMIA
     Dosage: 7.5 MG,  Q MONTHLY,  SUBCUTANEOUS?02/20/2013  TO  02/20/2013
     Route: 058
     Dates: start: 20130220, end: 20130220
  2. CALCITRIOL (CALCITRIOL) [Concomitant]
  3. FERROUS SULFATE (FERROUS SULFATE) [Concomitant]
  4. NEPHROVITE (ASCORBIC ACID, BIOTIN, CALCIUM PANTOTHENATE, CYANOCOBALAMIN, FOLIC ACID, NICOTINAMIDE, PYRIDOXINE HYDROCHLORIDE, RIBOFLAVIN,THIAMINE HYDROCHLORIDE) [Concomitant]
  5. LISINOPRIL (LISINOPRIL) [Concomitant]
  6. EPOGEN (EPOETIN ALFA) [Concomitant]
  7. AMLODIPINE (AMLODIPINE) [Concomitant]
  8. RENVELA (SEVELAMER CARBONATE) [Concomitant]
  9. AMBIEN (ZOLPIDEM TARTRATE) [Concomitant]
  10. CARVEDILOL (CARVEDILOL) [Concomitant]
  11. SENSIPAR (CINACALCET HYDROCHLORIDE) [Concomitant]
  12. VENOFER [Concomitant]

REACTIONS (9)
  - Hyperphosphataemia [None]
  - Eosinophilia [None]
  - Anaemia [None]
  - Pleural effusion [None]
  - Chest pain [None]
  - Cough [None]
  - Dyspnoea [None]
  - Empyema [None]
  - Staphylococcal infection [None]
